FAERS Safety Report 13537174 (Version 1)
Quarter: 2017Q2

REPORT INFORMATION
  Report Type: Spontaneous
  Country: US (occurrence: US)
  Receive Date: 20170511
  Receipt Date: 20170511
  Transmission Date: 20170830
  Serious: No
  Sender: FDA-Public Use
  Company Number: US-GLAXOSMITHKLINE-US2017065261

PATIENT

DRUGS (2)
  1. FLONASE ALLERGY RELIEF [Suspect]
     Active Substance: FLUTICASONE PROPIONATE
     Indication: PRODUCT USED FOR UNKNOWN INDICATION
     Dosage: UNK
  2. FLONASE [Suspect]
     Active Substance: FLUTICASONE PROPIONATE
     Indication: PRODUCT USED FOR UNKNOWN INDICATION
     Dosage: UNK

REACTIONS (8)
  - Ulcer [Not Recovered/Not Resolved]
  - Hypoaesthesia oral [Unknown]
  - Ill-defined disorder [Unknown]
  - Mouth swelling [Unknown]
  - Adverse drug reaction [Unknown]
  - Lymphadenopathy [Unknown]
  - Swelling face [Unknown]
  - Hypoaesthesia [Unknown]
